FAERS Safety Report 9620300 (Version 2)
Quarter: 2013Q4

REPORT INFORMATION
  Report Type: Spontaneous
  Country: US (occurrence: US)
  Receive Date: 20131014
  Receipt Date: 20131014
  Transmission Date: 20140711
  Serious: No
  Sender: FDA-Public Use
  Company Number: US-ALLERGAN-1301708US

PATIENT
  Age: 51 Year
  Sex: Female

DRUGS (2)
  1. ALPHAGAN P [Suspect]
     Indication: GLAUCOMA
     Dosage: 2 GTT, BID
     Route: 047
  2. COSOPT                             /01419801/ [Concomitant]
     Indication: GLAUCOMA

REACTIONS (4)
  - Incorrect dose administered [Unknown]
  - Hypersensitivity [Unknown]
  - Scleral hyperaemia [Unknown]
  - Ocular hyperaemia [Unknown]
